FAERS Safety Report 21674863 (Version 1)
Quarter: 2022Q4

REPORT INFORMATION
  Report Type: Spontaneous
  Country: CA (occurrence: CA)
  Receive Date: 20221202
  Receipt Date: 20221202
  Transmission Date: 20230113
  Serious: Yes (Other)
  Sender: FDA-Public Use
  Company Number: CA-009507513-2212CAN000344

PATIENT
  Age: 79 Year
  Sex: Female

DRUGS (1)
  1. EMEND (FOSAPREPITANT DIMEGLUMINE) [Suspect]
     Active Substance: FOSAPREPITANT DIMEGLUMINE
     Dosage: 150 MILLIGRAM, CYCLICAL
     Route: 042

REACTIONS (6)
  - Abdominal pain [Recovered/Resolved]
  - Blood pressure increased [Recovered/Resolved]
  - Depressed level of consciousness [Recovered/Resolved]
  - Flushing [Recovered/Resolved]
  - Malaise [Recovered/Resolved]
  - Muscle spasms [Recovered/Resolved]
